FAERS Safety Report 23566799 (Version 1)
Quarter: 2024Q1

REPORT INFORMATION
  Report Type: Spontaneous
  Country: US (occurrence: US)
  Receive Date: 20240226
  Receipt Date: 20240226
  Transmission Date: 20240410
  Serious: No
  Sender: FDA-Public Use
  Company Number: US-AMNEAL PHARMACEUTICALS-2023-AMRX-01717

PATIENT
  Sex: Female

DRUGS (2)
  1. RYTARY [Suspect]
     Active Substance: CARBIDOPA\LEVODOPA
     Indication: Product used for unknown indication
     Dosage: 36.25-145MG, 2 CAPSULES, 3 /DAY
     Route: 048
     Dates: start: 20221222, end: 20230513
  2. RYTARY [Suspect]
     Active Substance: CARBIDOPA\LEVODOPA
     Dosage: 36.25-145MG, 3 CAPSULES, 3 /DAY
     Route: 048

REACTIONS (3)
  - Sluggishness [Unknown]
  - Headache [Unknown]
  - Nausea [Unknown]
